FAERS Safety Report 20975783 (Version 2)
Quarter: 2022Q3

REPORT INFORMATION
  Report Type: Spontaneous
  Country: US (occurrence: US)
  Receive Date: 20220617
  Receipt Date: 20220909
  Transmission Date: 20221027
  Serious: Yes (Hospitalization, Other)
  Sender: FDA-Public Use
  Company Number: US-DUCHESNAY-2022US000079

PATIENT
  Sex: Female

DRUGS (7)
  1. DICLEGIS [Suspect]
     Active Substance: DOXYLAMINE SUCCINATE\PYRIDOXINE HYDROCHLORIDE
     Indication: Hyperemesis gravidarum
     Dosage: 4X/DAY
  2. ZOFRAN [Suspect]
     Active Substance: ONDANSETRON HYDROCHLORIDE
     Indication: Hyperemesis gravidarum
  3. PROMETHAZINE [Suspect]
     Active Substance: PROMETHAZINE HYDROCHLORIDE
     Indication: Hyperemesis gravidarum
  4. SCOPOLAMINE [Suspect]
     Active Substance: SCOPOLAMINE
     Indication: Hyperemesis gravidarum
  5. BENADRYL [Suspect]
     Active Substance: DIPHENHYDRAMINE HYDROCHLORIDE
     Indication: Hyperemesis gravidarum
  6. REGLAN [Suspect]
     Active Substance: METOCLOPRAMIDE HYDROCHLORIDE
     Indication: Hyperemesis gravidarum
  7. PEPCID [Suspect]
     Active Substance: FAMOTIDINE
     Indication: Hyperemesis gravidarum

REACTIONS (5)
  - Vomiting [Unknown]
  - Pre-eclampsia [Unknown]
  - Premature delivery [Unknown]
  - Drug ineffective for unapproved indication [Unknown]
  - Product use in unapproved indication [Unknown]
